FAERS Safety Report 24563286 (Version 1)
Quarter: 2024Q4

REPORT INFORMATION
  Report Type: Spontaneous
  Country: US (occurrence: US)
  Receive Date: 20241030
  Receipt Date: 20241030
  Transmission Date: 20250115
  Serious: No
  Sender: TEVA
  Company Number: US-TEVA-VS-3253655

PATIENT
  Sex: Female

DRUGS (1)
  1. TRAMADOL HYDROCHLORIDE [Suspect]
     Active Substance: TRAMADOL HYDROCHLORIDE
     Indication: Fibromyalgia
     Dosage: IN THE MORNING, FOR THE PAST FEW YEARS
     Route: 065

REACTIONS (4)
  - Anaemia [Unknown]
  - Joint stiffness [Unknown]
  - Drug ineffective [Unknown]
  - Product use in unapproved indication [Unknown]
